FAERS Safety Report 4325745-3 (Version None)
Quarter: 2004Q1

REPORT INFORMATION
  Report Type: 
  Country: None (occurrence: None)
  Receive Date: 20040324
  Receipt Date: 20040309
  Transmission Date: 20041129
  Serious: Yes (Disabling, Other)
  Sender: FDA-Public Use
  Company Number: USA020414089

PATIENT
  Age: 71 Year
  Sex: Male

DRUGS (9)
  1. HUMALOG [Suspect]
     Indication: DIABETES MELLITUS
  2. HUMULIN N [Suspect]
     Indication: DIABETES MELLITUS
     Dates: start: 20000101
  3. ZOCOR [Concomitant]
  4. VASOTEC [Concomitant]
  5. LASIX [Concomitant]
  6. TOPROL-XL [Concomitant]
  7. PREVACID [Concomitant]
  8. CARDURA [Concomitant]
  9. PLAVIX [Concomitant]

REACTIONS (2)
  - BLINDNESS [None]
  - MACULAR DEGENERATION [None]
